FAERS Safety Report 7795830-2 (Version None)
Quarter: 2011Q3

REPORT INFORMATION
  Report Type: 
  Country: None (occurrence: None)
  Receive Date: 20110930
  Receipt Date: 20110916
  Transmission Date: 20111222
  Serious: Yes (Other)
  Sender: FDA-Public Use
  Company Number: 2011SP043959

PATIENT
  Sex: Female

DRUGS (1)
  1. PROVENTIL-HFA [Suspect]
     Indication: PRODUCT USED FOR UNKNOWN INDICATION

REACTIONS (14)
  - MIGRAINE [None]
  - FIBROMYALGIA [None]
  - PAIN [None]
  - IMPAIRED GASTRIC EMPTYING [None]
  - INTESTINAL PROLAPSE [None]
  - NERVE COMPRESSION [None]
  - PLANTAR FASCIITIS [None]
  - PARALYSIS [None]
  - GASTROOESOPHAGEAL REFLUX DISEASE [None]
  - HYPERTENSION [None]
  - IRRITABLE BOWEL SYNDROME [None]
  - GASTRITIS [None]
  - BLADDER PROLAPSE [None]
  - INTERVERTEBRAL DISC PROTRUSION [None]
